FAERS Safety Report 16358883 (Version 1)
Quarter: 2019Q2

REPORT INFORMATION
  Report Type: Spontaneous
  Country: CN (occurrence: CN)
  Receive Date: 20190527
  Receipt Date: 20190527
  Transmission Date: 20190711
  Serious: Yes (Hospitalization)
  Sender: FDA-Public Use
  Company Number: CN-BAXTER-2019BAX010130

PATIENT
  Age: 41 Year
  Sex: Female
  Weight: 55 kg

DRUGS (8)
  1. ENDOXAN [Suspect]
     Active Substance: CYCLOPHOSPHAMIDE
     Indication: BREAST CANCER
     Dosage: DILUTED WITH 0.9% SODIUM CHLORIDE INJECTION 100 ML
     Route: 041
     Dates: start: 20190425, end: 20190425
  2. 0.9% SODIUM CHLORIDE INJECTION [Suspect]
     Active Substance: SODIUM CHLORIDE
     Dosage: WITH CYCLOPHOSPHAMIDE, DOSE RE-INTRODUCED
     Route: 041
  3. 5% GLUCOSE  INJECTION [Suspect]
     Active Substance: DEXTROSE
     Indication: MEDICATION DILUTION
     Dosage: WITH PIRARUBICIN HYDROCHLORIDE 75 MG
     Route: 041
     Dates: start: 20190425, end: 20190425
  4. PIRARUBICIN HYDROCHLORIDE [Suspect]
     Active Substance: PIRARUBICIN HYDROCHLORIDE
     Dosage: DILUTED WITH 5% GLUCOSE, DOSE RE-INTRODUCED
     Route: 041
  5. ENDOXAN [Suspect]
     Active Substance: CYCLOPHOSPHAMIDE
     Dosage: DILUTED WITH 0.9% SODIUM CHLORIDE INJECTION, DOSE RE-INTRODUCED
     Route: 041
  6. 5% GLUCOSE  INJECTION [Suspect]
     Active Substance: DEXTROSE
     Dosage: WITH PIRARUBICIN HYDROCHLORIDE, DOSE RE-INTRODUCED
     Route: 041
  7. PIRARUBICIN HYDROCHLORIDE [Suspect]
     Active Substance: PIRARUBICIN HYDROCHLORIDE
     Indication: BREAST CANCER
     Dosage: DILUTED WITH 5% GLUCOSE INJECTION 250 ML
     Route: 041
     Dates: start: 20190425, end: 20190425
  8. 0.9% SODIUM CHLORIDE INJECTION [Suspect]
     Active Substance: SODIUM CHLORIDE
     Indication: MEDICATION DILUTION
     Dosage: WITH CYCLOPHOSPHAMIDE 0.9 G
     Route: 041
     Dates: start: 20190425, end: 20190425

REACTIONS (1)
  - Bone marrow failure [Recovered/Resolved]

NARRATIVE: CASE EVENT DATE: 20190502
